FAERS Safety Report 24825157 (Version 1)
Quarter: 2025Q1

REPORT INFORMATION
  Report Type: Spontaneous
  Country: US (occurrence: None)
  Receive Date: 20250108
  Receipt Date: 20250108
  Transmission Date: 20250408
  Serious: Yes (Hospitalization)
  Sender: FDA-CTU
  Company Number: None

PATIENT

DRUGS (1)
  1. PACLITAXEL [Suspect]
     Active Substance: PACLITAXEL

REACTIONS (4)
  - Chest pain [None]
  - Back pain [None]
  - Dyspnoea [None]
  - Restlessness [None]

NARRATIVE: CASE EVENT DATE: 20240802
